FAERS Safety Report 10172058 (Version 1)
Quarter: 2014Q2

REPORT INFORMATION
  Report Type: Spontaneous
  Country: JP (occurrence: JP)
  Receive Date: 20140515
  Receipt Date: 20140515
  Transmission Date: 20141212
  Serious: Yes (Death, Other)
  Sender: FDA-Public Use
  Company Number: PHHY2014JP056111

PATIENT
  Age: 74 Year
  Sex: Female

DRUGS (2)
  1. HEPARIN [Suspect]
  2. WARFARIN [Suspect]
     Route: 048

REACTIONS (3)
  - Coagulopathy [Fatal]
  - Heparin-induced thrombocytopenia [Unknown]
  - International normalised ratio increased [Unknown]
